FAERS Safety Report 6292951-0 (Version None)
Quarter: 2009Q3

REPORT INFORMATION
  Report Type: 
  Country: None (occurrence: None)
  Receive Date: 20090731
  Receipt Date: 20090720
  Transmission Date: 20100115
  Serious: Yes (Death)
  Sender: FDA-Public Use
  Company Number: VE-GENENTECH-287586

PATIENT
  Sex: Female

DRUGS (1)
  1. MABTHERA [Suspect]
     Indication: OVERLAP SYNDROME
     Dosage: 1 G, UNK
     Route: 042
     Dates: start: 20090630

REACTIONS (1)
  - DEATH [None]
